FAERS Safety Report 7749462-2 (Version None)
Quarter: 2011Q3

REPORT INFORMATION
  Report Type: 
  Country: None (occurrence: None)
  Receive Date: 20110907
  Receipt Date: 20110830
  Transmission Date: 20111222
  Serious: Yes (Death, Life-Threatening)
  Sender: FDA-Public Use
  Company Number: 2011SP039087

PATIENT
  Age: 50 Year
  Sex: Male

DRUGS (1)
  1. NOXAFIL [Suspect]
     Indication: PROPHYLAXIS

REACTIONS (2)
  - CARDIAC ARREST [None]
  - FUNGAL INFECTION [None]
